FAERS Safety Report 7203969-5 (Version None)
Quarter: 2010Q4

REPORT INFORMATION
  Report Type: 
  Country: None (occurrence: None)
  Receive Date: 20101230
  Receipt Date: 20101220
  Transmission Date: 20110411
  Serious: Yes (Hospitalization, Other)
  Sender: FDA-Public Use
  Company Number: FR-ELI_LILLY_AND_COMPANY-FR201009008209

PATIENT
  Sex: Female
  Weight: 65 kg

DRUGS (5)
  1. ZYPREXA [Suspect]
     Indication: SCHIZOPHRENIA
     Dosage: 20 MG, DAILY (1/D)
     Route: 048
     Dates: start: 20090119, end: 20100923
  2. TERCIAN [Concomitant]
     Indication: ANXIETY
     Dosage: 100 MG, DAILY (1/D)
     Route: 048
     Dates: start: 20080830
  3. PARKINANE [Concomitant]
     Dosage: 5 MG, DAILY (1/D)
     Route: 048
     Dates: start: 20080830
  4. XANAX [Concomitant]
     Indication: ANXIETY
     Dosage: 1.5 MG, UNK
     Route: 048
     Dates: start: 20080923
  5. MEPRONIZINE [Concomitant]
     Indication: TREMOR
     Dosage: 800 MG, DAILY (1/D)
     Route: 048
     Dates: start: 20090805

REACTIONS (14)
  - AGITATION [None]
  - ALCOHOLISM [None]
  - ANXIETY [None]
  - CONFUSIONAL STATE [None]
  - CONVULSION [None]
  - HEPATOCELLULAR INJURY [None]
  - HYPOKINESIA [None]
  - HYPONATRAEMIA [None]
  - INCREASED BRONCHIAL SECRETION [None]
  - INFECTION [None]
  - PANIC ATTACK [None]
  - RHABDOMYOLYSIS [None]
  - VISUAL ACUITY REDUCED [None]
  - VISUAL IMPAIRMENT [None]
